FAERS Safety Report 21025698 (Version 1)
Quarter: 2022Q2

REPORT INFORMATION
  Report Type: Other
  Country: DE (occurrence: DE)
  Receive Date: 20220630
  Receipt Date: 20220630
  Transmission Date: 20220721
  Serious: Yes (Other)
  Sender: FDA-Public Use
  Company Number: DE-BoehringerIngelheim-2022-BI-177985

PATIENT
  Age: 48 Year
  Sex: Male

DRUGS (2)
  1. ALTEPLASE [Suspect]
     Active Substance: ALTEPLASE
     Indication: Thrombosis prophylaxis
     Dosage: CUMULATIVE RECOMBINANT TISSUE-TYPE PLASMINOGEN ACTIVATOR (RTPA) DOSE (70 MILLIGRAM)
     Route: 065
  2. SODIUM CHLORIDE [Concomitant]
     Active Substance: SODIUM CHLORIDE
     Indication: Product used for unknown indication

REACTIONS (5)
  - Bronchial haemorrhage [Recovered/Resolved]
  - Off label use [Unknown]
  - Post procedural haemorrhage [Recovered/Resolved]
  - Pharyngeal haemorrhage [Recovered/Resolved]
  - Skin haemorrhage [Recovered/Resolved]
